FAERS Safety Report 19911783 (Version 2)
Quarter: 2021Q4

REPORT INFORMATION
  Report Type: Other
  Country: GB (occurrence: GB)
  Receive Date: 20211004
  Receipt Date: 20211011
  Transmission Date: 20220303
  Serious: Yes (Other)
  Sender: FDA-Public Use
  Company Number: None

PATIENT
  Age: 21 Year
  Sex: Female

DRUGS (19)
  1. HYDROCORTISONE [Suspect]
     Active Substance: HYDROCORTISONE
     Indication: Product used for unknown indication
     Dosage: UNK UNK, PRN (UNK, TO FACE AND BODY, AS NECESSARY)
     Route: 065
     Dates: start: 19890531, end: 20170616
  2. PREDNISOLONE [Suspect]
     Active Substance: PREDNISOLONE
     Indication: Eczema
     Dosage: UNK, 3-10 DAY 5MG ON 4 OR 5 OCCASIONS IN A 2 YEAR PERIOD, STARTED ON 21-JAN-2011
     Route: 048
     Dates: end: 20130314
  3. BETNOVATE [Suspect]
     Active Substance: BETAMETHASONE
     Indication: Eczema
     Dosage: UNK, TOPICALLY TO THE BODY SOMETIMES 1-2 TIMES A DAY
     Route: 061
     Dates: start: 20000828, end: 20080914
  4. CLOBETASOL [Suspect]
     Active Substance: CLOBETASOL
     Indication: Dermatitis atopic
     Dosage: UNK, TOPICALLY SOMETIMES ONCE A DAY FOR LONGER THAN 7 DAYS, STARTED ON 14 SEP 2009
     Route: 061
     Dates: end: 20140224
  5. CLOBETASOL [Suspect]
     Active Substance: CLOBETASOL
     Dosage: UNK UNK, PRN  STARTED ON 14 SEP 2009
     Route: 061
     Dates: end: 20140224
  6. ELOCON [Suspect]
     Active Substance: MOMETASONE FUROATE
     Indication: Eczema
     Dosage: UNK, STARTED ON 14 JAN 2011
     Route: 061
     Dates: end: 20120417
  7. EUMOVATE [Suspect]
     Active Substance: CLOBETASONE BUTYRATE
     Indication: Eczema
     Dosage: UNK UNK, PRN (UNK, AS NECESSARY,STARTED ON 14-JAN-2011)
     Route: 061
     Dates: end: 20130412
  8. KENALOG [Suspect]
     Active Substance: TRIAMCINOLONE ACETONIDE
     Indication: Product used for unknown indication
     Dosage: UNK, STARTED ON 14-MAY-2013
     Route: 065
  9. PROTOPIC [Suspect]
     Active Substance: TACROLIMUS
     Indication: Eczema
     Dosage: UNK UNK, PRN (UNK, AS NECESSARY, TO THE FACE AND NECK , STARTED ON 21-JAN-2011)
     Route: 061
     Dates: end: 20140224
  10. ACYCLOVIR [Concomitant]
     Active Substance: ACYCLOVIR
     Indication: Product used for unknown indication
     Dosage: UNK
     Route: 065
  11. EPINEPHRINE [Concomitant]
     Active Substance: EPINEPHRINE
     Indication: Product used for unknown indication
     Dosage: UNK
     Route: 065
  12. BECONASE AQ [Concomitant]
     Active Substance: BECLOMETHASONE DIPROPIONATE MONOHYDRATE
     Indication: Product used for unknown indication
     Dosage: UNK
     Route: 065
  13. CETIRIZINE HYDROCHLORIDE [Concomitant]
     Active Substance: CETIRIZINE HYDROCHLORIDE
     Indication: Product used for unknown indication
     Dosage: UNK
     Route: 065
  14. FEXOFENADINE HYDROCHLORIDE [Concomitant]
     Active Substance: FEXOFENADINE HYDROCHLORIDE
     Indication: Product used for unknown indication
     Dosage: UNK
     Route: 065
  15. FUSIDIC ACID [Concomitant]
     Active Substance: FUSIDIC ACID
     Indication: Product used for unknown indication
     Dosage: UNK
     Route: 065
  16. ACETAMINOPHEN [Concomitant]
     Active Substance: ACETAMINOPHEN
     Indication: Product used for unknown indication
     Dosage: UNK
     Route: 065
  17. IBROFEN [Concomitant]
     Indication: Product used for unknown indication
     Dosage: UNK
     Route: 065
  18. ALBUTEROL SULFATE [Concomitant]
     Active Substance: ALBUTEROL SULFATE
     Indication: Product used for unknown indication
     Dosage: UNK
     Route: 065
  19. SUDAFED NASAL SPRAY [Concomitant]
     Indication: Product used for unknown indication
     Dosage: UNK NASAL SPRAY
     Route: 065

REACTIONS (11)
  - Skin burning sensation [Recovered/Resolved]
  - Pyrexia [Not Recovered/Not Resolved]
  - Skin weeping [Not Recovered/Not Resolved]
  - Pain of skin [Not Recovered/Not Resolved]
  - Skin warm [Unknown]
  - Hyperhidrosis [Unknown]
  - Skin exfoliation [Not Recovered/Not Resolved]
  - Hypersensitivity [Unknown]
  - Skin infection [Not Recovered/Not Resolved]
  - Eczema herpeticum [Unknown]
  - Drug withdrawal syndrome [Unknown]

NARRATIVE: CASE EVENT DATE: 20080419
